FAERS Safety Report 23180706 (Version 4)
Quarter: 2023Q4

REPORT INFORMATION
  Report Type: Report from Study
  Country: US (occurrence: US)
  Receive Date: 20231114
  Receipt Date: 20231130
  Transmission Date: 20240110
  Serious: Yes (Other)
  Sender: FDA-Public Use
  Company Number: US-AstraZeneca-CH-00502516A

PATIENT
  Sex: Female

DRUGS (1)
  1. STRENSIQ [Suspect]
     Active Substance: ASFOTASE ALFA
     Indication: Product used for unknown indication
     Dosage: UNK
     Route: 065

REACTIONS (17)
  - Hydrocephalus [Unknown]
  - Neoplasm malignant [Unknown]
  - Intentional product use issue [Unknown]
  - Foot fracture [Unknown]
  - Limb injury [Unknown]
  - Hypersensitivity [Unknown]
  - Peripheral swelling [Unknown]
  - Malaise [Unknown]
  - Myalgia [Unknown]
  - General physical health deterioration [Unknown]
  - Angiopathy [Unknown]
  - Nervous system disorder [Unknown]
  - Arthralgia [Unknown]
  - Anaemia [Unknown]
  - Dysstasia [Unknown]
  - Arthritis [Unknown]
  - Central nervous system lesion [Unknown]
